FAERS Safety Report 19948500 (Version 1)
Quarter: 2021Q4

REPORT INFORMATION
  Report Type: Spontaneous
  Country: US (occurrence: US)
  Receive Date: 20211013
  Receipt Date: 20211013
  Transmission Date: 20220303
  Serious: Yes (Other)
  Sender: FDA-Public Use
  Company Number: US-DRREDDYS-LIT/USA/21/0142576

PATIENT
  Age: 78 Year
  Sex: Female

DRUGS (5)
  1. PRIMIDONE [Suspect]
     Active Substance: PRIMIDONE
     Indication: Secondary cerebellar degeneration
  2. LEVETIRACETAM [Suspect]
     Active Substance: LEVETIRACETAM
     Indication: Secondary cerebellar degeneration
  3. CLONAZEPAM [Suspect]
     Active Substance: CLONAZEPAM
     Indication: Secondary cerebellar degeneration
  4. GABAPENTIN [Suspect]
     Active Substance: GABAPENTIN
     Indication: Secondary cerebellar degeneration
  5. LEVODOPA [Suspect]
     Active Substance: LEVODOPA
     Indication: Secondary cerebellar degeneration

REACTIONS (1)
  - Drug ineffective [Unknown]
